FAERS Safety Report 23692823 (Version 3)
Quarter: 2025Q2

REPORT INFORMATION
  Report Type: Spontaneous
  Country: CA (occurrence: CA)
  Receive Date: 20240401
  Receipt Date: 20250408
  Transmission Date: 20250717
  Serious: Yes (Other)
  Sender: PFIZER
  Company Number: CA-PFIZER INC-202300024670

PATIENT
  Age: 80 Year
  Sex: Male

DRUGS (15)
  1. RUXIENCE [Interacting]
     Active Substance: RITUXIMAB-PVVR
     Indication: Granulomatosis with polyangiitis
     Route: 042
     Dates: start: 20230127
  2. RUXIENCE [Interacting]
     Active Substance: RITUXIMAB-PVVR
     Indication: Microscopic polyangiitis
     Route: 042
     Dates: start: 20230210
  3. RUXIENCE [Interacting]
     Active Substance: RITUXIMAB-PVVR
     Route: 042
     Dates: start: 20230929, end: 20230929
  4. RUXIENCE [Interacting]
     Active Substance: RITUXIMAB-PVVR
     Route: 042
     Dates: start: 20240327
  5. RUXIENCE [Interacting]
     Active Substance: RITUXIMAB-PVVR
     Route: 042
     Dates: start: 20240927
  6. RUXIENCE [Interacting]
     Active Substance: RITUXIMAB-PVVR
     Route: 042
     Dates: start: 20250401
  7. BISOPROLOL [Concomitant]
     Active Substance: BISOPROLOL
  8. CANDESARTAN [Concomitant]
     Active Substance: CANDESARTAN
  9. CLOPIDOGREL [Concomitant]
     Active Substance: CLOPIDOGREL BISULFATE
  10. CRESTOR [Concomitant]
     Active Substance: ROSUVASTATIN CALCIUM
  11. DUTASTERIDE [Concomitant]
     Active Substance: DUTASTERIDE
  12. PANTOPRAZOLE [Concomitant]
     Active Substance: PANTOPRAZOLE
  13. PREDNISONE [Concomitant]
     Active Substance: PREDNISONE
  14. RIFAMPIN [Concomitant]
     Active Substance: RIFAMPIN
  15. RISEDRONATE SODIUM [Concomitant]
     Active Substance: RISEDRONATE SODIUM

REACTIONS (6)
  - Pulmonary fibrosis [Unknown]
  - Antineutrophil cytoplasmic antibody positive [Unknown]
  - Food interaction [Not Recovered/Not Resolved]
  - Off label use [Unknown]
  - Off label use [Unknown]
  - Intentional product use issue [Unknown]

NARRATIVE: CASE EVENT DATE: 20230101
